FAERS Safety Report 5854497-0 (Version None)
Quarter: 2008Q3

REPORT INFORMATION
  Report Type: 
  Country: None (occurrence: None)
  Receive Date: 20080822
  Receipt Date: 20071025
  Transmission Date: 20090109
  Serious: No
  Sender: FDA-Public Use
  Company Number: US-ABBOTT-07P-163-0362911-00

PATIENT
  Sex: Female
  Weight: 74.91 kg

DRUGS (9)
  1. SYNTHROID [Suspect]
     Indication: HYPOTHYROIDISM
     Route: 048
     Dates: end: 20070101
  2. SYNTHROID [Suspect]
     Route: 048
     Dates: start: 20070101, end: 20070201
  3. SYNTHROID [Suspect]
     Dates: start: 20070201, end: 20070601
  4. SYNTHROID [Suspect]
     Route: 048
     Dates: start: 20070601
  5. PHENELZINE SULFATE [Concomitant]
     Indication: PANIC DISORDER
     Route: 048
     Dates: start: 19860101
  6. CENTRUM [Concomitant]
     Indication: VITAMIN SUPPLEMENTATION
     Route: 048
  7. MINERAL TAB [Concomitant]
     Indication: DRUG USE FOR UNKNOWN INDICATION
     Route: 048
  8. CALCIUM CITRATE [Concomitant]
     Indication: VITAMIN SUPPLEMENTATION
     Route: 048
     Dates: start: 20050101
  9. VITAMIN TAB [Concomitant]
     Indication: DRUG USE FOR UNKNOWN INDICATION

REACTIONS (12)
  - ANXIETY [None]
  - BLOOD PRESSURE INCREASED [None]
  - BLOOD THYROID STIMULATING HORMONE ABNORMAL [None]
  - DYSPNOEA [None]
  - FEELING ABNORMAL [None]
  - FEELING JITTERY [None]
  - GAIT DISTURBANCE [None]
  - HEART RATE INCREASED [None]
  - HYPERTHYROIDISM [None]
  - PALPITATIONS [None]
  - SLEEP TERROR [None]
  - TREMOR [None]
